FAERS Safety Report 5494447-2 (Version None)
Quarter: 2007Q4

REPORT INFORMATION
  Report Type: 
  Country: None (occurrence: None)
  Receive Date: 20071022
  Receipt Date: 20071022
  Transmission Date: 20080405
  Serious: Yes (Other)
  Sender: FDA-Public Use
  Company Number: None

PATIENT
  Age: 65 Year
  Sex: Female
  Weight: 77.1115 kg

DRUGS (2)
  1. CYPHER DRUG ELUTING STENT JOHNSON AND JOHNSON [Suspect]
     Indication: CORONARY ARTERY OCCLUSION
     Dates: start: 20040814, end: 20071021
  2. TAXOL [Suspect]
     Indication: CORONARY ARTERIAL STENT INSERTION
     Dates: start: 20041209, end: 20071021

REACTIONS (7)
  - BREAST PAIN [None]
  - COMPLICATION OF DEVICE INSERTION [None]
  - DYSPNOEA [None]
  - FEAR [None]
  - MALAISE [None]
  - PRURITUS [None]
  - WHEEZING [None]
